FAERS Safety Report 13705059 (Version 1)
Quarter: 2017Q2

REPORT INFORMATION
  Report Type: Spontaneous
  Country: US (occurrence: US)
  Receive Date: 20170629
  Receipt Date: 20170629
  Transmission Date: 20170830
  Serious: Yes (Disabling)
  Sender: FDA-Public Use
  Company Number: None

PATIENT
  Age: 63 Year
  Sex: Female
  Weight: 67.5 kg

DRUGS (4)
  1. AMBIEN [Suspect]
     Active Substance: ZOLPIDEM TARTRATE
     Indication: INSOMNIA
     Dates: start: 20140428, end: 20140922
  2. MAGNESIUM [Concomitant]
     Active Substance: MAGNESIUM
  3. XANAX [Suspect]
     Active Substance: ALPRAZOLAM
     Indication: ANXIETY
     Dosage: ?          QUANTITY:1 TABLET(S);?
     Route: 048
     Dates: start: 20140905, end: 20140922
  4. CALCIUM [Concomitant]
     Active Substance: CALCIUM

REACTIONS (25)
  - Disturbance in attention [None]
  - Anxiety [None]
  - Memory impairment [None]
  - Pain in jaw [None]
  - Abdominal pain upper [None]
  - Tongue coated [None]
  - Oral discomfort [None]
  - Withdrawal syndrome [None]
  - Muscle atrophy [None]
  - Hypophagia [None]
  - Tremor [None]
  - Sinus disorder [None]
  - Weight decreased [None]
  - Crying [None]
  - Dyspnoea [None]
  - General physical condition abnormal [None]
  - Eructation [None]
  - Chest pain [None]
  - Asthenia [None]
  - Malaise [None]
  - Vision blurred [None]
  - Toxicity to various agents [None]
  - Insomnia [None]
  - Suicidal ideation [None]
  - Gait disturbance [None]

NARRATIVE: CASE EVENT DATE: 20140501
